FAERS Safety Report 10700043 (Version 1)
Quarter: 2015Q1

REPORT INFORMATION
  Report Type: Spontaneous
  Country: US (occurrence: None)
  Receive Date: 20150107
  Receipt Date: 20150107
  Transmission Date: 20150721
  Serious: Yes (Congenital Anomaly)
  Sender: FDA-Public Use
  Company Number: 2694058

PATIENT

DRUGS (3)
  1. ADRIAMYCIN [Suspect]
     Active Substance: DOXORUBICIN HYDROCHLORIDE
     Indication: PRODUCT USED FOR UNKNOWN INDICATION
     Dosage: UNKNOWN , UNKNOWN, TRANSPLACENTAL
     Route: 064
  2. (CYCLOPHOSPHAMIDE) [Suspect]
     Active Substance: CYCLOPHOSPHAMIDE
     Dosage: UNKNOWN, UNKNOWN, TRANSPLACENTAL
     Route: 064
  3. (DOCETAXEL) [Suspect]
     Active Substance: DOCETAXEL
     Dosage: UNKNOWN , UNKNOWN, TRANSPLANTAL
     Route: 064

REACTIONS (2)
  - Speech disorder developmental [None]
  - Foetal exposure during pregnancy [None]
